FAERS Safety Report 8999753 (Version 2)
Quarter: 2013Q1

REPORT INFORMATION
  Report Type: Other
  Country: JP (occurrence: JP)
  Receive Date: 20130102
  Receipt Date: 20130304
  Transmission Date: 20140127
  Serious: Yes (Life-Threatening)
  Sender: FDA-Public Use
  Company Number: JP-JHP PHARMACEUTICALS, LLC-JHP201200586

PATIENT
  Age: 93 Year
  Sex: Female
  Weight: 35.2 kg

DRUGS (13)
  1. DANTRIUM [Suspect]
     Indication: NEUROLEPTIC MALIGNANT SYNDROME
     Dosage: 60 MG, DAILY
     Route: 042
     Dates: start: 20121023, end: 20121023
  2. PARLODEL [Suspect]
     Indication: NEUROLEPTIC MALIGNANT SYNDROME
     Dosage: 2.5 MG, BID
     Route: 048
     Dates: start: 20121023, end: 20121023
  3. HORIZON [Suspect]
     Indication: NEUROLEPTIC MALIGNANT SYNDROME
     Dosage: 2 MG, BID
     Route: 048
     Dates: start: 20121023, end: 20121023
  4. CALONAL [Suspect]
     Indication: NEUROLEPTIC MALIGNANT SYNDROME
     Dosage: 600 MG, BID
     Dates: start: 20121023, end: 20121023
  5. BAYASPIRIN [Concomitant]
  6. ALLEGRA [Concomitant]
  7. PREDNISOLONE [Concomitant]
  8. UNIPHYL [Concomitant]
  9. METHYCOBAL [Concomitant]
  10. GASTER [Concomitant]
  11. GRAMALIL [Concomitant]
  12. RISPERDAL [Concomitant]
  13. LULLAN [Concomitant]

REACTIONS (1)
  - Anaphylactic shock [Recovered/Resolved]
